FAERS Safety Report 10272476 (Version 1)
Quarter: 2014Q3

REPORT INFORMATION
  Report Type: Spontaneous
  Country: SI (occurrence: SI)
  Receive Date: 20140702
  Receipt Date: 20140702
  Transmission Date: 20150326
  Serious: Yes (Hospitalization)
  Sender: FDA-Public Use
  Company Number: SI-ROCHE-1425444

PATIENT
  Age: 51 Year
  Sex: Female

DRUGS (8)
  1. REGLAN [Concomitant]
     Active Substance: METOCLOPRAMIDE HYDROCHLORIDE
     Dosage: 3 TBL./DAY IF NEEDED
     Route: 048
  2. CALCIUM CARBONATE. [Concomitant]
     Active Substance: CALCIUM CARBONATE
     Dosage: 1 TBL./DAY
     Route: 048
  3. ABSTRAL [Concomitant]
     Active Substance: FENTANYL CITRATE
     Dosage: AS REQUIRED
     Route: 065
  4. DUROGESIC [Concomitant]
     Active Substance: FENTANYL
     Dosage: 12 MCG/H?DUROGESIC 12 MCG/H TRANSDERMAL PATCHES
     Route: 065
  5. KALINOR [Concomitant]
     Active Substance: POTASSIUM CITRATE
     Dosage: EVERY THIRD DAY 2 TBL.
     Route: 048
  6. CONTROLOC [Concomitant]
     Active Substance: PANTOPRAZOLE SODIUM
     Dosage: IN THE MORNINGS
     Route: 065
  7. XELODA [Suspect]
     Active Substance: CAPECITABINE
     Indication: BREAST CANCER METASTATIC
     Dosage: 1650MG//12?
     Route: 048
     Dates: start: 20140508, end: 20140517
  8. EDEMID [Concomitant]
     Dosage: 2 TBL./DAY IF NEEDED
     Route: 048

REACTIONS (2)
  - Stomatitis [Recovered/Resolved]
  - Enterocolitis [Recovered/Resolved]

NARRATIVE: CASE EVENT DATE: 20140516
